FAERS Safety Report 10027935 (Version 1)
Quarter: 2014Q1

REPORT INFORMATION
  Report Type: Report from Study
  Country: US (occurrence: US)
  Receive Date: 20140321
  Receipt Date: 20140321
  Transmission Date: 20141002
  Serious: Yes (Death)
  Sender: FDA-Public Use
  Company Number: PHEH2014US005522

PATIENT
  Sex: Male

DRUGS (1)
  1. TOBI [Suspect]
     Indication: LUNG TRANSPLANT
     Dosage: 300 MG, BID
     Route: 055
     Dates: start: 20130726, end: 20130826

REACTIONS (1)
  - Death [Fatal]
